FAERS Safety Report 16653816 (Version 2)
Quarter: 2019Q3

REPORT INFORMATION
  Report Type: Spontaneous
  Country: US (occurrence: US)
  Receive Date: 20190731
  Receipt Date: 20190828
  Transmission Date: 20191004
  Serious: Yes (Hospitalization, Other)
  Sender: FDA-Public Use
  Company Number: US-PFIZER INC-2019324662

PATIENT
  Age: 56 Year
  Sex: Male
  Weight: 97.52 kg

DRUGS (2)
  1. LYRICA [Suspect]
     Active Substance: PREGABALIN
     Indication: NEURALGIA
     Dosage: 150 MG, 3X/DAY
     Route: 048
     Dates: start: 2016
  2. CYMBALTA [Suspect]
     Active Substance: DULOXETINE HYDROCHLORIDE
     Indication: NEURALGIA
     Dosage: 90 MG, 1X/DAY
     Route: 048
     Dates: start: 2018

REACTIONS (12)
  - Pancreatitis [Unknown]
  - Asthenia [Unknown]
  - Vomiting [Unknown]
  - Diabetes mellitus [Unknown]
  - Depression [Unknown]
  - Personality change [Unknown]
  - Abnormal behaviour [Unknown]
  - Somnolence [Unknown]
  - Loss of personal independence in daily activities [Unknown]
  - Squamous cell carcinoma [Unknown]
  - Mood altered [Unknown]
  - Malaise [Unknown]

NARRATIVE: CASE EVENT DATE: 201803
